FAERS Safety Report 8556287 (Version 3)
Quarter: 2012Q4

REPORT INFORMATION
  Report Type: Spontaneous
  Country: IE (occurrence: None)
  Receive Date: 20120503
  Receipt Date: 20120914
  Transmission Date: 20130627
  Serious: Yes (Hospitalization, Other)
  Sender: FDA-Public Use
  Company Number: IE-008285

PATIENT
  Age: 66 Year
  Sex: Male

DRUGS (5)
  1. FIRMAGON [Suspect]
     Indication: PROSTATE CANCER
     Route: 058
     Dates: start: 20101015, end: 20101015
  2. FIRMAGON [Suspect]
     Indication: PROSTATE CANCER
     Route: 058
     Dates: start: 2010
  3. PROSCAR [Concomitant]
  4. LIPITOR [Concomitant]
  5. VALSARTAN [Concomitant]

REACTIONS (4)
  - Injection site abscess [None]
  - Abdominal wall abscess [None]
  - Wrong technique in drug usage process [None]
  - Cellulitis [None]
